FAERS Safety Report 25728354 (Version 4)
Quarter: 2025Q4

REPORT INFORMATION
  Report Type: Spontaneous
  Country: US (occurrence: US)
  Receive Date: 20250826
  Receipt Date: 20251016
  Transmission Date: 20260118
  Serious: Yes (Hospitalization, Other)
  Sender: CALLIDITAS THERAPEUTICS AB
  Company Number: US-Calliditas-2025CAL02574

PATIENT
  Age: 69 Year
  Sex: Male

DRUGS (18)
  1. TARPEYO [Suspect]
     Active Substance: BUDESONIDE
     Indication: IgA nephropathy
     Dosage: 16MG (4MG CAPSULES) ONCE DAILY
     Route: 048
     Dates: start: 20250808
  2. ATENOLOL [Concomitant]
     Active Substance: ATENOLOL
  3. DAPSONE [Concomitant]
     Active Substance: DAPSONE
  4. DARUNAVIR [Concomitant]
     Active Substance: DARUNAVIR
  5. FLONASE ALLERGY RELIEF [Concomitant]
     Active Substance: FLUTICASONE PROPIONATE
  6. GENVOYA [Concomitant]
     Active Substance: COBICISTAT\ELVITEGRAVIR\EMTRICITABINE\TENOFOVIR ALAFENAMIDE FUMARATE
  7. JANUVIA [Concomitant]
     Active Substance: SITAGLIPTIN PHOSPHATE
  8. LISINOPRIL [Concomitant]
     Active Substance: LISINOPRIL
  9. MELATONIN [Concomitant]
     Active Substance: MELATONIN
  10. MULTIVITAMINS WITH MINERALS [UMBRELLA TERM] [Concomitant]
  11. MYRBETRIQ [Concomitant]
     Active Substance: MIRABEGRON
  12. NIFEDIPINE [Concomitant]
     Active Substance: NIFEDIPINE
  13. OMEPRAZOLE [Concomitant]
     Active Substance: OMEPRAZOLE
  14. PREDNISONE [Concomitant]
     Active Substance: PREDNISONE
  15. TAMSULOSIN [Concomitant]
     Active Substance: TAMSULOSIN
  16. TRESIBA [Concomitant]
     Active Substance: INSULIN DEGLUDEC
  17. CYANOCOBALAMIN [Concomitant]
     Active Substance: CYANOCOBALAMIN
  18. CHOLECALCIFEROL [Concomitant]
     Active Substance: CHOLECALCIFEROL

REACTIONS (7)
  - Asthenia [Unknown]
  - Fatigue [Unknown]
  - Diarrhoea [Unknown]
  - Pancreatitis [Recovering/Resolving]
  - Cardiac failure congestive [Recovering/Resolving]
  - Renal impairment [Unknown]
  - Product dose omission issue [Unknown]

NARRATIVE: CASE EVENT DATE: 20250818
